FAERS Safety Report 8358438-6 (Version None)
Quarter: 2012Q2

REPORT INFORMATION
  Report Type: 
  Country: None (occurrence: None)
  Receive Date: 20120514
  Receipt Date: 20110908
  Transmission Date: 20120825
  Serious: No
  Sender: FDA-Public Use
  Company Number: US-TEVA-2011004727

PATIENT
  Sex: Female

DRUGS (2)
  1. NUVIGIL [Suspect]
     Dosage: 150 MILLIGRAM;
     Route: 048
     Dates: end: 20110901
  2. NUVIGIL [Suspect]
     Indication: POOR QUALITY SLEEP
     Dosage: 75 MILLIGRAM;
     Route: 048
     Dates: start: 20110801

REACTIONS (1)
  - DRUG INEFFECTIVE FOR UNAPPROVED INDICATION [None]
